FAERS Safety Report 9539108 (Version 1)
Quarter: 2013Q2

REPORT INFORMATION
  Report Type: Spontaneous
  Country: US (occurrence: None)
  Receive Date: 20130517
  Receipt Date: 20130517
  Transmission Date: 20140414
  Serious: No
  Sender: FDA-Public Use
  Company Number: 1000042421

PATIENT
  Age: 56 Year
  Sex: Male

DRUGS (2)
  1. VIIBRYD (VILAZODONE HYDROCHLORIDE) (10 MILLIGRAM, TABLETS) [Suspect]
     Indication: DEPRESSION
     Dosage: 10 MG (10 MG, 1 IN 1 D), ORAL
     Route: 048
     Dates: start: 20130129
  2. LISINOPRIL (LISINOPRIL) (LISINOPRIL) [Concomitant]

REACTIONS (6)
  - Headache [None]
  - Diarrhoea [None]
  - Insomnia [None]
  - Nausea [None]
  - Feeling abnormal [None]
  - Vomiting [None]
